FAERS Safety Report 18089030 (Version 1)
Quarter: 2020Q3

REPORT INFORMATION
  Report Type: Spontaneous
  Country: MX (occurrence: MX)
  Receive Date: 20200730
  Receipt Date: 20200730
  Transmission Date: 20201103
  Serious: Yes (Other)
  Sender: FDA-Public Use
  Company Number: MX-ROCHE-2650424

PATIENT
  Age: 40 Year
  Sex: Male
  Weight: 98 kg

DRUGS (1)
  1. TOCILIZUMAB. [Suspect]
     Active Substance: TOCILIZUMAB
     Indication: COVID-19
     Route: 042
     Dates: start: 20200613, end: 20200619

REACTIONS (4)
  - Carotid artery thrombosis [Recovered/Resolved with Sequelae]
  - Off label use [Unknown]
  - Subclavian artery thrombosis [Recovered/Resolved with Sequelae]
  - Intentional product use issue [Unknown]

NARRATIVE: CASE EVENT DATE: 20200613
